FAERS Safety Report 6928716-3 (Version None)
Quarter: 2010Q3

REPORT INFORMATION
  Report Type: 
  Country: None (occurrence: None)
  Receive Date: 20100817
  Receipt Date: 20100809
  Transmission Date: 20110219
  Serious: Yes (Hospitalization, Disabling)
  Sender: FDA-Public Use
  Company Number: B0668968A

PATIENT
  Age: 31 Year
  Sex: Female
  Weight: 60 kg

DRUGS (3)
  1. AMPICILLIN SODIUM/SULBACTAM SODIUM [Suspect]
     Indication: SOFT TISSUE INFECTION
     Route: 048
     Dates: start: 20100716, end: 20100721
  2. FLUCLOXACILLIN [Suspect]
     Indication: SOFT TISSUE INFECTION
     Route: 048
     Dates: start: 20100716, end: 20100721
  3. NORDETTE-28 [Concomitant]
     Indication: CONTRACEPTION
     Dosage: 1IUAX PER DAY
     Route: 048

REACTIONS (2)
  - CLOSTRIDIUM TEST POSITIVE [None]
  - DIARRHOEA [None]
